FAERS Safety Report 24738376 (Version 2)
Quarter: 2025Q1

REPORT INFORMATION
  Report Type: Spontaneous
  Country: BE (occurrence: BE)
  Receive Date: 20241216
  Receipt Date: 20250130
  Transmission Date: 20250408
  Serious: Yes (Other)
  Sender: PFIZER
  Company Number: BE-PFIZER INC-202400324464

PATIENT
  Sex: Female
  Weight: 60 kg

DRUGS (3)
  1. METHOTREXATE [Suspect]
     Active Substance: METHOTREXATE
     Indication: Rheumatoid arthritis
     Dosage: 6 TO 8 PILLS/WEEK
     Dates: start: 2003, end: 202411
  2. ARCOXIA [Concomitant]
     Active Substance: ETORICOXIB
     Indication: Rheumatic disorder
  3. FOSAVANCE [Concomitant]
     Active Substance: ALENDRONATE SODIUM\CHOLECALCIFEROL
     Dosage: 70 MG, WEEKLY

REACTIONS (2)
  - Breast cancer female [Unknown]
  - Depression [Unknown]

NARRATIVE: CASE EVENT DATE: 20140901
